FAERS Safety Report 9792772 (Version 1)
Quarter: 2014Q1

REPORT INFORMATION
  Report Type: Spontaneous
  Country: US (occurrence: US)
  Receive Date: 20140102
  Receipt Date: 20140102
  Transmission Date: 20141002
  Serious: No
  Sender: FDA-Public Use
  Company Number: US-SANOFI-AVENTIS-2013SA038813

PATIENT
  Age: 28 Year
  Sex: Female

DRUGS (1)
  1. AUBAGIO [Suspect]
     Indication: MULTIPLE SCLEROSIS
     Dosage: TAKEN FROM-3 WEEKS AGO
     Route: 048

REACTIONS (3)
  - Somnolence [Recovered/Resolved]
  - Fatigue [Recovered/Resolved]
  - Alopecia [Unknown]
